FAERS Safety Report 8165812-X (Version None)
Quarter: 2012Q1

REPORT INFORMATION
  Report Type: 
  Country: None (occurrence: None)
  Receive Date: 20120227
  Receipt Date: 20120217
  Transmission Date: 20120608
  Serious: Yes (Hospitalization, Other)
  Sender: FDA-Public Use
  Company Number: US-BAYER-2011-059293

PATIENT
  Sex: Female
  Weight: 109 kg

DRUGS (30)
  1. YAZ [Suspect]
     Dosage: UNK
     Dates: start: 20081001, end: 20081201
  2. DROSPIRENONE AND ETHINYL ESTRADIOL [Suspect]
     Dosage: UNK
     Dates: start: 20081218
  3. FLUOXETINE HCL [Concomitant]
     Indication: ANXIETY
     Dosage: UNK
     Dates: start: 20010101
  4. PROZAC [Concomitant]
  5. YAZ [Suspect]
     Dosage: UNK
     Dates: start: 20090301, end: 20090401
  6. YAZ [Suspect]
     Dosage: UNK
     Dates: start: 20090101, end: 20090201
  7. NEXIUM [Concomitant]
     Indication: GASTROOESOPHAGEAL REFLUX DISEASE
     Dosage: UNK
     Dates: start: 20010101
  8. TUSSIONEX [Concomitant]
     Indication: VOCAL CORD DISORDER
  9. OMEPRAZOLE [Concomitant]
     Indication: GASTROOESOPHAGEAL REFLUX DISEASE
     Dosage: UNK
     Dates: start: 20010101
  10. ASPIRIN [Concomitant]
     Dosage: 325 MG DAILY
  11. YASMIN [Suspect]
     Dosage: UNK
     Route: 048
     Dates: start: 20080511, end: 20080610
  12. AZITHROMYCIN [Concomitant]
     Indication: SINUSITIS
     Dosage: UNK
     Dates: start: 20090619, end: 20090625
  13. RELPAX [Concomitant]
     Indication: MIGRAINE
  14. REQUIP [Concomitant]
     Indication: RESTLESS LEGS SYNDROME
     Dosage: UNK
     Dates: start: 20060101
  15. VICODIN [Concomitant]
     Indication: MIGRAINE
     Dosage: UNK
     Dates: start: 20090705
  16. AGGRENOX [Concomitant]
  17. BENADRYL [Concomitant]
  18. TOPIRAMATE [Concomitant]
  19. DROSPIRENONE AND ETHINYL ESTRADIOL [Suspect]
     Dosage: UNK
     Dates: start: 20090211
  20. DROSPIRENONE AND ETHINYL ESTRADIOL [Suspect]
     Dosage: UNK
     Dates: start: 20090409, end: 20090705
  21. ACYCLOVIR [Concomitant]
  22. AMITRIPTYLINE HCL [Concomitant]
     Dosage: UNK
     Dates: start: 20090601
  23. YASMIN [Suspect]
     Dosage: UNK
     Route: 048
     Dates: start: 20080308, end: 20080413
  24. TUSSIONEX [Concomitant]
     Indication: COUGH
     Dosage: UNK
     Dates: start: 20030101, end: 20080601
  25. VALTREX [Concomitant]
     Indication: GENITAL HERPES
     Dosage: UNK
     Dates: start: 19880101
  26. LOVENOX [Concomitant]
     Indication: THROMBOSIS PROPHYLAXIS
  27. GABAPENTIN [Concomitant]
  28. YASMIN [Suspect]
     Dosage: UNK
     Dates: start: 20010101, end: 20060201
  29. DROSPIRENONE AND ETHINYL ESTRADIOL [Suspect]
     Dosage: UNK
     Dates: start: 20080710, end: 20080928
  30. MAXALT [Concomitant]
     Indication: MIGRAINE

REACTIONS (18)
  - EMOTIONAL DISTRESS [None]
  - CLUMSINESS [None]
  - SPEECH DISORDER [None]
  - ANXIETY [None]
  - ABDOMINAL PAIN UPPER [None]
  - GENERAL PHYSICAL HEALTH DETERIORATION [None]
  - HEADACHE [None]
  - ASTHENIA [None]
  - INJURY [None]
  - BILIARY COLIC [None]
  - CEREBRAL INFARCTION [None]
  - APRAXIA [None]
  - CEREBROVASCULAR ACCIDENT [None]
  - GALLBLADDER DISORDER [None]
  - MIGRAINE [None]
  - PAIN [None]
  - MUSCULAR WEAKNESS [None]
  - PARAESTHESIA [None]
